FAERS Safety Report 8792616 (Version 1)
Quarter: 2012Q4

REPORT INFORMATION
  Report Type: 
  Country: US (occurrence: US)
  Receive Date: 20120918
  Receipt Date: 20120918
  Transmission Date: 20130627
  Serious: Yes (Hospitalization, Other)
  Sender: FDA-Public Use
  Company Number: US-009507513-1209USA003489

PATIENT

DRUGS (14)
  1. ISENTRESS [Suspect]
     Route: 048
  2. TEGRETOL [Suspect]
     Dosage: 400 mg, qd
     Route: 042
  3. VIMPAT [Suspect]
  4. KIVEXA [Suspect]
  5. PREZISTA [Suspect]
  6. KEPPRA [Suspect]
  7. NORVIR [Suspect]
  8. BACTRIM [Suspect]
     Dosage: UNK
  9. LOXEN [Concomitant]
  10. MOPRAL (OMEPRAZOLE) [Concomitant]
  11. RIVOTRIL [Concomitant]
  12. HYPNOVEL [Concomitant]
  13. SUFENTA [Concomitant]
  14. LOVENOX [Concomitant]

REACTIONS (2)
  - Immune reconstitution inflammatory syndrome [Unknown]
  - Rash maculo-papular [Unknown]
